FAERS Safety Report 8627146 (Version 2)
Quarter: 2013Q2

REPORT INFORMATION
  Report Type: Spontaneous
  Country: US (occurrence: US)
  Receive Date: 20120621
  Receipt Date: 20130607
  Transmission Date: 20140414
  Serious: Yes (Other)
  Sender: FDA-Public Use
  Company Number: US-BIOGENIDEC-2012BI016561

PATIENT
  Age: 62 Year
  Sex: Female

DRUGS (4)
  1. AVONEX [Suspect]
     Indication: MULTIPLE SCLEROSIS
     Route: 030
  2. AVONEX [Suspect]
     Indication: MULTIPLE SCLEROSIS
     Route: 030
     Dates: start: 20110427, end: 20120509
  3. MEDICATIONS (NOS) [Concomitant]
     Indication: DEPRESSION
  4. MEDICATIONS (NOS) [Concomitant]
     Indication: ASTHMA

REACTIONS (12)
  - Pyrexia [Recovered/Resolved]
  - Convulsion [Recovered/Resolved]
  - Feeling of body temperature change [Unknown]
  - Back pain [Unknown]
  - Tooth fracture [Not Recovered/Not Resolved]
  - Hallucination [Recovered/Resolved]
  - Memory impairment [Not Recovered/Not Resolved]
  - Skin discolouration [Unknown]
  - Pain in extremity [Unknown]
  - Pain [Unknown]
  - Muscle spasms [Recovered/Resolved]
  - Alopecia [Unknown]
